FAERS Safety Report 12434612 (Version 2)
Quarter: 2016Q3

REPORT INFORMATION
  Report Type: Spontaneous
  Country: GB (occurrence: GB)
  Receive Date: 20160603
  Receipt Date: 20160702
  Transmission Date: 20161109
  Serious: Yes (Life-Threatening, Other)
  Sender: FDA-Public Use
  Company Number: GB-AMGEN-GBRSP2016068888

PATIENT
  Age: 53 Year
  Sex: Male

DRUGS (3)
  1. FOLIC ACID. [Concomitant]
     Active Substance: FOLIC ACID
     Indication: ARTHRITIS REACTIVE
     Dosage: 5 MG, WEEKLY
     Route: 048
     Dates: start: 2005, end: 201605
  2. ENBREL [Suspect]
     Active Substance: ETANERCEPT
     Indication: PRODUCT USED FOR UNKNOWN INDICATION
     Dosage: 50 MG, WEEKLY
     Route: 058
     Dates: start: 20060315, end: 201605
  3. METHOTREXATE. [Concomitant]
     Active Substance: METHOTREXATE
     Indication: ARTHRITIS REACTIVE
     Dosage: 20 MG, WEEKLY
     Route: 048
     Dates: start: 2005, end: 201605

REACTIONS (2)
  - Brain neoplasm [Unknown]
  - Gliomatosis cerebri [Not Recovered/Not Resolved]

NARRATIVE: CASE EVENT DATE: 201605
